FAERS Safety Report 14833295 (Version 4)
Quarter: 2018Q2

REPORT INFORMATION
  Report Type: Spontaneous
  Country: HR (occurrence: HR)
  Receive Date: 20180501
  Receipt Date: 20180628
  Transmission Date: 20180711
  Serious: Yes (Hospitalization)
  Sender: FDA-Public Use
  Company Number: HR-PFIZER INC-2018177188

PATIENT
  Age: 37 Year
  Sex: Male

DRUGS (25)
  1. DIAZEPAM. [Suspect]
     Active Substance: DIAZEPAM
     Indication: HYPOMANIA
     Dosage: UNK
     Route: 048
     Dates: start: 2011
  2. BYOL [Suspect]
     Active Substance: BISOPROLOL
     Indication: SOMATIC SYMPTOM DISORDER
     Dosage: UNK
  3. RAMIPRIL. [Suspect]
     Active Substance: RAMIPRIL
     Indication: SCHIZOAFFECTIVE DISORDER
     Dosage: UNK
     Route: 048
  4. DIAZEPAM. [Suspect]
     Active Substance: DIAZEPAM
     Indication: DEPRESSION
  5. CLOZAPINE. [Suspect]
     Active Substance: CLOZAPINE
     Indication: SOMATIC SYMPTOM DISORDER
     Dosage: 5 MG, UNK
  6. CLOZAPINE. [Suspect]
     Active Substance: CLOZAPINE
     Indication: PSYCHOTIC DISORDER
  7. BYOL [Suspect]
     Active Substance: BISOPROLOL
     Indication: PSYCHOTIC DISORDER
  8. RISPERDAL CONSTA [Suspect]
     Active Substance: RISPERIDONE
     Indication: SCHIZOAFFECTIVE DISORDER
     Dosage: 50 MG, UNK
     Dates: start: 201304, end: 201505
  9. LAMOTRIGINE. [Suspect]
     Active Substance: LAMOTRIGINE
     Indication: SOMATIC SYMPTOM DISORDER
     Dosage: UNK
     Dates: start: 2010
  10. LAMOTRIGINE. [Suspect]
     Active Substance: LAMOTRIGINE
     Indication: BIPOLAR DISORDER
     Dosage: UNK
     Dates: start: 2011
  11. LAMOTRIGINE. [Suspect]
     Active Substance: LAMOTRIGINE
     Indication: ESSENTIAL HYPERTENSION
  12. DIAZEPAM. [Suspect]
     Active Substance: DIAZEPAM
     Indication: SCHIZOAFFECTIVE DISORDER
  13. MIDAZOLAM [Suspect]
     Active Substance: MIDAZOLAM HYDROCHLORIDE
     Indication: PSYCHOTIC DISORDER
  14. LAMOTRIGINE. [Suspect]
     Active Substance: LAMOTRIGINE
     Indication: HYPOMANIA
  15. CONCOR [Suspect]
     Active Substance: BISOPROLOL FUMARATE
     Indication: SOMATIC SYMPTOM DISORDER
     Dosage: UNK
  16. CONCOR [Suspect]
     Active Substance: BISOPROLOL FUMARATE
     Indication: ESSENTIAL HYPERTENSION
  17. DIAZEPAM. [Suspect]
     Active Substance: DIAZEPAM
     Indication: SOMATIC SYMPTOM DISORDER
     Dosage: UNK
     Route: 048
     Dates: start: 200812
  18. BYOL [Suspect]
     Active Substance: BISOPROLOL
     Indication: SCHIZOAFFECTIVE DISORDER
  19. RISPERIDONE. [Suspect]
     Active Substance: RISPERIDONE
     Indication: SCHIZOAFFECTIVE DISORDER
     Dosage: 50 MG, UNK
     Dates: start: 201304
  20. MIDAZOLAM [Suspect]
     Active Substance: MIDAZOLAM HYDROCHLORIDE
     Indication: SOMATIC SYMPTOM DISORDER
     Dosage: UNK
  21. RAMIPRIL. [Suspect]
     Active Substance: RAMIPRIL
     Indication: PSYCHOTIC DISORDER
  22. RISPERIDONE. [Suspect]
     Active Substance: RISPERIDONE
     Indication: PSYCHOTIC DISORDER
     Dosage: UNK
     Route: 048
  23. LAMOTRIGINE. [Suspect]
     Active Substance: LAMOTRIGINE
     Indication: PSYCHOTIC DISORDER
  24. LAMOTRIGINE. [Suspect]
     Active Substance: LAMOTRIGINE
     Indication: SCHIZOAFFECTIVE DISORDER
     Dosage: UNK
     Dates: start: 201110
  25. DIAZEPAM. [Suspect]
     Active Substance: DIAZEPAM
     Indication: ESSENTIAL HYPERTENSION
     Dosage: UNK
     Route: 048
     Dates: start: 2010

REACTIONS (3)
  - Illusion [Unknown]
  - Depression [Unknown]
  - Condition aggravated [Unknown]

NARRATIVE: CASE EVENT DATE: 201304
